FAERS Safety Report 14346893 (Version 5)
Quarter: 2018Q2

REPORT INFORMATION
  Report Type: Spontaneous
  Country: US (occurrence: US)
  Receive Date: 20180103
  Receipt Date: 20180627
  Transmission Date: 20180711
  Serious: Yes (Hospitalization, Other)
  Sender: FDA-Public Use
  Company Number: US-PFIZER INC-2018000316

PATIENT
  Age: 78 Year
  Sex: Female
  Weight: 66.41 kg

DRUGS (5)
  1. IBRANCE [Suspect]
     Active Substance: PALBOCICLIB
     Indication: BREAST CANCER METASTATIC
     Dosage: 125 MG, DAILY
     Route: 048
  2. IBRANCE [Suspect]
     Active Substance: PALBOCICLIB
     Dosage: 125 MG, 1X/DAY
     Route: 048
     Dates: start: 20171201
  3. IBRANCE [Suspect]
     Active Substance: PALBOCICLIB
     Dosage: 125 MG, CYCLIC (21 DAYS ON 7 DAYS OFF)
     Route: 048
     Dates: start: 20171130
  4. IBRANCE [Suspect]
     Active Substance: PALBOCICLIB
     Dosage: 125 MG, CYCLIC (DAILY FOR 21 DAYS ON, 7 DAYS OFF)
     Route: 048
     Dates: start: 201712, end: 20180507
  5. IBRANCE [Suspect]
     Active Substance: PALBOCICLIB
     Dosage: 125 MG, CYCLIC (ONCE A DAY BY MOUTH FOR 21 DAYS AND 7 DAYS OFF)
     Route: 048
     Dates: end: 20180603

REACTIONS (11)
  - Pulmonary thrombosis [Recovered/Resolved with Sequelae]
  - Diarrhoea [Unknown]
  - Pleural effusion [Recovered/Resolved]
  - Fatigue [Unknown]
  - Full blood count decreased [Unknown]
  - Neoplasm progression [Unknown]
  - Nasopharyngitis [Unknown]
  - White blood cell count decreased [Unknown]
  - Decreased appetite [Unknown]
  - Dyspnoea [Not Recovered/Not Resolved]
  - Neoplasm recurrence [Unknown]

NARRATIVE: CASE EVENT DATE: 2017
